FAERS Safety Report 17642065 (Version 1)
Quarter: 2020Q2

REPORT INFORMATION
  Report Type: Spontaneous
  Country: US (occurrence: US)
  Receive Date: 20200408
  Receipt Date: 20200408
  Transmission Date: 20200713
  Serious: No
  Sender: FDA-Public Use
  Company Number: US-CEDIPROF, INC.-2082501

PATIENT
  Age: 66 Year
  Sex: Female

DRUGS (1)
  1. LEVO-T [Suspect]
     Active Substance: LEVOTHYROXINE SODIUM
     Indication: PRODUCT USED FOR UNKNOWN INDICATION

REACTIONS (8)
  - Drug ineffective [Unknown]
  - Overdose [Unknown]
  - Tri-iodothyronine free abnormal [Unknown]
  - Blood glucose decreased [Unknown]
  - Thyroxine abnormal [None]
  - Loss of consciousness [Unknown]
  - Feeling jittery [Unknown]
  - Nausea [Unknown]
